FAERS Safety Report 10027102 (Version 2)
Quarter: 2018Q2

REPORT INFORMATION
  Report Type: Report from Study
  Country: US (occurrence: US)
  Receive Date: 20140321
  Receipt Date: 20180606
  Transmission Date: 20180711
  Serious: Yes (Other)
  Sender: FDA-Public Use
  Company Number: US-ROCHE-1364540

PATIENT
  Sex: Female
  Weight: 31.2 kg

DRUGS (23)
  1. CELLCEPT [Suspect]
     Active Substance: MYCOPHENOLATE MOFETIL\MYCOPHENOLATE MOFETIL HYDROCHLORIDE
     Indication: RENAL TRANSPLANT
     Route: 048
  2. NUTROPIN [Suspect]
     Active Substance: SOMATROPIN
     Indication: CHRONIC KIDNEY DISEASE
     Route: 058
  3. CALCITRIOL. [Concomitant]
     Active Substance: CALCITRIOL
     Route: 048
  4. CATAPRES [Concomitant]
     Active Substance: CLONIDINE HYDROCHLORIDE
     Route: 061
  5. LANSOPRAZOLE. [Concomitant]
     Active Substance: LANSOPRAZOLE
     Route: 048
  6. PREDNISONE. [Concomitant]
     Active Substance: PREDNISONE
     Route: 048
  7. MYFORTIC [Concomitant]
     Active Substance: MYCOPHENOLATE SODIUM
     Route: 048
  8. CHOLECALCIFEROL [Concomitant]
     Active Substance: CHOLECALCIFEROL
     Route: 048
  9. VALGANCICLOVIR. [Suspect]
     Active Substance: VALGANCICLOVIR
     Indication: END STAGE RENAL DISEASE
     Route: 065
  10. FOSRENOL [Concomitant]
     Active Substance: LANTHANUM CARBONATE
     Route: 048
  11. ZOFRAN [Concomitant]
     Active Substance: ONDANSETRON HYDROCHLORIDE
     Indication: NAUSEA
  12. LISINOPRIL. [Concomitant]
     Active Substance: LISINOPRIL
     Route: 048
  13. ZOFRAN [Concomitant]
     Active Substance: ONDANSETRON HYDROCHLORIDE
     Indication: VOMITING
     Route: 048
  14. HEPARIN [Concomitant]
     Active Substance: HEPARIN SODIUM
  15. LOVAZA [Concomitant]
     Active Substance: OMEGA-3-ACID ETHYL ESTERS
     Route: 048
  16. TACROLIMUS. [Concomitant]
     Active Substance: TACROLIMUS
     Route: 048
  17. MEPRON (UNITED STATES) [Concomitant]
     Route: 048
  18. XOPENEX HFA [Concomitant]
     Active Substance: LEVALBUTEROL TARTRATE
     Route: 055
  19. LABETALOL [Concomitant]
     Active Substance: LABETALOL\LABETALOL HYDROCHLORIDE
     Route: 048
  20. CATAPRES [Concomitant]
     Active Substance: CLONIDINE HYDROCHLORIDE
     Route: 061
  21. EPOGEN [Concomitant]
     Active Substance: ERYTHROPOIETIN
     Route: 058
  22. MYFORTIC [Concomitant]
     Active Substance: MYCOPHENOLATE SODIUM
     Route: 048
  23. LOSARTAN. [Concomitant]
     Active Substance: LOSARTAN

REACTIONS (21)
  - Hypocalcaemia [Unknown]
  - Haematocrit increased [Unknown]
  - Blood triglycerides increased [Unknown]
  - Red blood cell count increased [Unknown]
  - Blood cholesterol increased [Unknown]
  - Blood pressure increased [Unknown]
  - Essential hypertension [Unknown]
  - Hyperparathyroidism [Unknown]
  - Anaemia [Unknown]
  - Lipids increased [Unknown]
  - Haemoglobin increased [Unknown]
  - Pyuria [Unknown]
  - Low density lipoprotein increased [Unknown]
  - Pulmonary granuloma [Unknown]
  - Mean platelet volume decreased [Unknown]
  - Immunosuppressant drug level decreased [Unknown]
  - Platelet count increased [Unknown]
  - Cough [Unknown]
  - Drug intolerance [Unknown]
  - Blood phosphorus increased [Unknown]
  - Haematuria [Unknown]
